FAERS Safety Report 8395303-2 (Version None)
Quarter: 2012Q1

REPORT INFORMATION
  Report Type: 
  Country: None (occurrence: None)
  Receive Date: 20120323
  Receipt Date: 20110228
  Transmission Date: 20120608
  Serious: Yes (Hospitalization)
  Sender: FDA-Public Use
  Company Number: 163-21880-11030246

PATIENT
  Age: 80 Year
  Sex: Female

DRUGS (3)
  1. REVLIMID [Suspect]
     Indication: MULTIPLE MYELOMA
     Dosage: 10 MG, 1 IN 1 D, PO, 5-15MG, DAILY, PO, 5 MG, DAILY, PO
     Route: 048
     Dates: start: 20080601, end: 20110218
  2. REVLIMID [Suspect]
     Indication: MULTIPLE MYELOMA
     Dosage: 10 MG, 1 IN 1 D, PO, 5-15MG, DAILY, PO, 5 MG, DAILY, PO
     Route: 048
     Dates: start: 20100701, end: 20110218
  3. REVLIMID [Suspect]
     Indication: MULTIPLE MYELOMA
     Dosage: 10 MG, 1 IN 1 D, PO, 5-15MG, DAILY, PO, 5 MG, DAILY, PO
     Route: 048
     Dates: start: 20080411

REACTIONS (2)
  - KIDNEY INFECTION [None]
  - PNEUMONIA [None]
